FAERS Safety Report 11877883 (Version 1)
Quarter: 2015Q4

REPORT INFORMATION
  Report Type: Spontaneous
  Country: US (occurrence: US)
  Receive Date: 20151230
  Receipt Date: 20151230
  Transmission Date: 20160305
  Serious: Yes (Other)
  Sender: FDA-Public Use
  Company Number: US-CIPLA LTD.-2015US10018

PATIENT

DRUGS (2)
  1. CARBOPLATIN. [Suspect]
     Active Substance: CARBOPLATIN
     Indication: UTERINE CANCER
     Dosage: 6 CYCLES PRIOR TO WHOLE ABDOMINAL IRRADIATION (WAI)
     Route: 065
  2. PACLITAXEL. [Suspect]
     Active Substance: PACLITAXEL
     Indication: UTERINE CANCER
     Dosage: 6 CYCLES PRIOR TO WHOLE ABDOMINAL IRRADIATION (WAI)
     Route: 065

REACTIONS (1)
  - Ascites [Unknown]
